FAERS Safety Report 20645933 (Version 2)
Quarter: 2022Q2

REPORT INFORMATION
  Report Type: Report from Study
  Country: US (occurrence: None)
  Receive Date: 20220329
  Receipt Date: 20220518
  Transmission Date: 20220721
  Serious: Yes (Other)
  Sender: FDA-Public Use
  Company Number: US-Merck Healthcare KGaA-9308681

PATIENT
  Age: 52 Year
  Sex: Female
  Weight: 82 kg

DRUGS (4)
  1. REBIF [Suspect]
     Active Substance: INTERFERON BETA-1A
     Indication: Product used for unknown indication
     Dates: start: 20040715, end: 201208
  2. REBIF [Suspect]
     Active Substance: INTERFERON BETA-1A
  3. ERGOCALCIFEROL [Concomitant]
     Active Substance: ERGOCALCIFEROL
     Indication: Product used for unknown indication
  4. ZYRTEC [Concomitant]
     Active Substance: CETIRIZINE HYDROCHLORIDE
     Indication: Seasonal allergy

REACTIONS (1)
  - Cholecystectomy [Unknown]

NARRATIVE: CASE EVENT DATE: 20120801
